FAERS Safety Report 4951993-5 (Version None)
Quarter: 2006Q1

REPORT INFORMATION
  Report Type: 
  Country: None (occurrence: None)
  Receive Date: 20060322
  Receipt Date: 20060322
  Transmission Date: 20060701
  Serious: Yes (Other)
  Sender: FDA-Public Use
  Company Number: None

PATIENT
  Age: 65 Year
  Sex: Male

DRUGS (5)
  1. COPAXONE [Suspect]
     Indication: MULTIPLE SCLEROSIS
     Dosage: 20 MG DAILY SQ
     Dates: start: 20060201
  2. ZANAFLEX [Concomitant]
  3. LEVSINEX [Concomitant]
  4. PROZAC [Concomitant]
  5. BACLOFEN [Concomitant]

REACTIONS (4)
  - GENERALISED ERYTHEMA [None]
  - INJECTION SITE URTICARIA [None]
  - PRURITUS [None]
  - URTICARIA GENERALISED [None]
